FAERS Safety Report 6446556-9 (Version None)
Quarter: 2009Q4

REPORT INFORMATION
  Report Type: 
  Country: None (occurrence: None)
  Receive Date: 20091119
  Receipt Date: 20091116
  Transmission Date: 20100525
  Serious: Yes (Death)
  Sender: FDA-Public Use
  Company Number: US-GILEAD-2009-0025447

PATIENT
  Sex: Male

DRUGS (14)
  1. LETAIRIS [Suspect]
     Indication: PULMONARY ARTERIAL HYPERTENSION
     Route: 048
     Dates: start: 20090801
  2. OXYGEN [Concomitant]
  3. REVATIO [Concomitant]
  4. WARFARIN SODIUM [Concomitant]
  5. PROPRANOLOL [Concomitant]
  6. LISINOPRIL [Concomitant]
  7. PRAVASTATIN [Concomitant]
  8. GEMFIBROZIL [Concomitant]
  9. MARINOL [Concomitant]
  10. ACYCLOVIR [Concomitant]
  11. NORVIR [Concomitant]
  12. ALLOPURINOL BESYLATE [Concomitant]
  13. LORAZEPAM [Concomitant]
  14. PAROXETINE HCL [Concomitant]

REACTIONS (1)
  - DEATH [None]
